FAERS Safety Report 9853381 (Version 1)
Quarter: 2014Q1

REPORT INFORMATION
  Report Type: Spontaneous
  Country: US (occurrence: US)
  Receive Date: 20140129
  Receipt Date: 20140129
  Transmission Date: 20141002
  Serious: Yes (Hospitalization)
  Sender: FDA-Public Use
  Company Number: US-MYLANLABS-2014S1001704

PATIENT
  Sex: Male

DRUGS (1)
  1. EPIPEN [Suspect]

REACTIONS (1)
  - Intentional drug misuse [Recovered/Resolved]
